FAERS Safety Report 8437501-5 (Version None)
Quarter: 2012Q2

REPORT INFORMATION
  Report Type: 
  Country: None (occurrence: None)
  Receive Date: 20120614
  Receipt Date: 20120403
  Transmission Date: 20120825
  Serious: No
  Sender: FDA-Public Use
  Company Number: US-AMGEN-USASP2012003429

PATIENT
  Age: 65 Year
  Sex: Female

DRUGS (2)
  1. PROLIA [Suspect]
     Indication: OSTEOPOROSIS POSTMENOPAUSAL
     Dosage: UNK
     Dates: start: 20110901
  2. ROSUVASTATIN [Concomitant]
     Dosage: UNK

REACTIONS (3)
  - PLANTAR FASCIITIS [None]
  - GASTROOESOPHAGEAL REFLUX DISEASE [None]
  - COLITIS MICROSCOPIC [None]
